FAERS Safety Report 8185359-4 (Version None)
Quarter: 2012Q1

REPORT INFORMATION
  Report Type: 
  Country: None (occurrence: None)
  Receive Date: 20120305
  Receipt Date: 20120228
  Transmission Date: 20120608
  Serious: Yes (Hospitalization, Disabling, Other)
  Sender: FDA-Public Use
  Company Number: PHHY2012MX017681

PATIENT
  Sex: Male

DRUGS (3)
  1. STALEVO 100 [Suspect]
     Indication: PARKINSON'S DISEASE
     Dosage: 2 DF, QD
     Route: 048
     Dates: start: 20110401, end: 20120101
  2. LOSARTAN POTASSIUM [Concomitant]
     Indication: HYPERTENSION
     Dosage: 1 DF, QD
     Route: 048
  3. STALEVO 100 [Suspect]
     Dosage: 2 DF DAILY
     Dates: start: 20120101

REACTIONS (2)
  - CEREBROVASCULAR ACCIDENT [None]
  - APHONIA [None]
